FAERS Safety Report 14918887 (Version 1)
Quarter: 2018Q2

REPORT INFORMATION
  Report Type: Spontaneous
  Country: US (occurrence: US)
  Receive Date: 20180521
  Receipt Date: 20180521
  Transmission Date: 20180711
  Serious: No
  Sender: FDA-Public Use
  Company Number: US-BION-006380

PATIENT
  Age: 64 Year
  Sex: Female
  Weight: 136.08 kg

DRUGS (1)
  1. EQUATE IBUPROFEN [Suspect]
     Active Substance: IBUPROFEN
     Indication: PAIN
     Dosage: STRENGHT: 200MG. 1 OR 2 SOFTGELS, AS NEEDED.
     Route: 048
     Dates: start: 20170522

REACTIONS (2)
  - Dyspepsia [Recovering/Resolving]
  - Incorrect dose administered [Not Recovered/Not Resolved]

NARRATIVE: CASE EVENT DATE: 20170522
